FAERS Safety Report 9192790 (Version 1)
Quarter: 2013Q1

REPORT INFORMATION
  Report Type: Report from Study
  Country: US (occurrence: US)
  Receive Date: 20130327
  Receipt Date: 20130327
  Transmission Date: 20140127
  Serious: Yes (Other)
  Sender: FDA-Public Use
  Company Number: US-EISAI INC-E3810-06327-SOL-US

PATIENT
  Age: 42 Year
  Sex: Female

DRUGS (1)
  1. ACIPHEX (RABEPRAZOLE) [Suspect]
     Dosage: UNKNOWN
     Route: 048

REACTIONS (1)
  - Liver injury [Unknown]
